FAERS Safety Report 20159705 (Version 2)
Quarter: 2022Q1

REPORT INFORMATION
  Report Type: Spontaneous
  Country: CA (occurrence: CA)
  Receive Date: 20211208
  Receipt Date: 20220201
  Transmission Date: 20220423
  Serious: Yes (Other)
  Sender: FDA-Public Use
  Company Number: CA-SA-SAC20211203000821

PATIENT
  Age: 45 Year
  Sex: Female

DRUGS (1)
  1. TUBERSOL [Suspect]
     Active Substance: TUBERCULIN PURIFIED PROTEIN DERIVATIVE
     Indication: Tuberculin test
     Dosage: 0.1 ML, 1X
     Route: 023
     Dates: start: 20210407, end: 20210407

REACTIONS (15)
  - Chest discomfort [Recovered/Resolved]
  - Lymphadenopathy [Recovered/Resolved]
  - Paraesthesia [Recovered/Resolved]
  - Middle insomnia [Recovered/Resolved]
  - Feeling hot [Recovered/Resolved]
  - Skin swelling [Recovered/Resolved]
  - Throat irritation [Recovered/Resolved]
  - Cough [Recovered/Resolved]
  - Paraesthesia [Recovered/Resolved]
  - Swollen tongue [Recovered/Resolved]
  - Swelling [Recovered/Resolved]
  - Nausea [Recovered/Resolved]
  - Vomiting [Recovered/Resolved]
  - Cough [Recovered/Resolved]
  - Pyrexia [Recovered/Resolved]

NARRATIVE: CASE EVENT DATE: 20210408
